FAERS Safety Report 24293537 (Version 1)
Quarter: 2024Q3

REPORT INFORMATION
  Report Type: Spontaneous
  Country: US (occurrence: None)
  Receive Date: 20240906
  Receipt Date: 20240906
  Transmission Date: 20241016
  Serious: No
  Sender: DOMPE FARMACEUTICI
  Company Number: US-FARMAPROD-202401-0317

PATIENT
  Sex: Female

DRUGS (10)
  1. OXERVATE [Suspect]
     Active Substance: CENEGERMIN-BKBJ
     Indication: Neurotrophic keratopathy
     Route: 047
     Dates: start: 20240124
  2. OXERVATE [Suspect]
     Active Substance: CENEGERMIN-BKBJ
  3. OMEGA-3 + D [Concomitant]
     Dosage: 150-500 MG
  4. ESCITALOPRAM OXALATE [Concomitant]
     Active Substance: ESCITALOPRAM OXALATE
  5. ACYCLOVIR [Concomitant]
     Active Substance: ACYCLOVIR
  6. MAGNESIUM [Concomitant]
     Active Substance: MAGNESIUM
  7. DEMANNOSE [Concomitant]
     Active Substance: DEMANNOSE
  8. RETAINE MGD [Concomitant]
     Active Substance: LIGHT MINERAL OIL\MINERAL OIL
     Dosage: 0.5 %-0.5%
  9. CYCLOBENZAPRINE HYDROCHLORIDE [Concomitant]
     Active Substance: CYCLOBENZAPRINE HYDROCHLORIDE
  10. CALCIUM [Concomitant]
     Active Substance: CALCIUM

REACTIONS (5)
  - Eye pain [Not Recovered/Not Resolved]
  - Product use complaint [Recovered/Resolved]
  - Eyelid irritation [Unknown]
  - Eyelid irritation [Unknown]
  - Erythema of eyelid [Unknown]
